FAERS Safety Report 17706136 (Version 2)
Quarter: 2020Q2

REPORT INFORMATION
  Report Type: Report from Study
  Country: US (occurrence: US)
  Receive Date: 20200424
  Receipt Date: 20200530
  Transmission Date: 20200714
  Serious: Yes (Other)
  Sender: FDA-Public Use
  Company Number: NVSC2020US107999

PATIENT
  Sex: Female

DRUGS (2)
  1. COSENTYX [Suspect]
     Active Substance: SECUKINUMAB
     Indication: PSORIATIC ARTHROPATHY
  2. COSENTYX [Suspect]
     Active Substance: SECUKINUMAB
     Indication: PSORIASIS
     Dosage: 300 MG, OTHER(INJECT 2 PENS(00)AT WEEK 0,1,2,3,4+INJECT 2PENS(300MG)ONCE EVERY 4 WEEKS THERE AFTER)
     Route: 058
     Dates: start: 20200402

REACTIONS (8)
  - Ocular hyperaemia [Unknown]
  - Pruritus [Unknown]
  - Rash [Unknown]
  - Erythema [Unknown]
  - Sunburn [Unknown]
  - Eye pruritus [Unknown]
  - Feeling hot [Unknown]
  - Cellulitis [Unknown]
